FAERS Safety Report 6505051-9 (Version None)
Quarter: 2009Q4

REPORT INFORMATION
  Report Type: 
  Country: None (occurrence: None)
  Receive Date: 20091218
  Receipt Date: 20091207
  Transmission Date: 20100525
  Serious: No
  Sender: FDA-Public Use
  Company Number: US-JNJFOC-20091006691

PATIENT
  Sex: Female
  Weight: 74.84 kg

DRUGS (13)
  1. DURAGESIC-100 [Suspect]
     Indication: PAIN
     Route: 062
  2. DURAGESIC-100 [Suspect]
     Indication: SPINAL CORD INJURY
     Route: 062
  3. CELEBREX [Concomitant]
     Route: 065
  4. NEURONTIN [Concomitant]
     Route: 065
  5. PROTONIX [Concomitant]
     Route: 065
  6. DETROL [Concomitant]
     Route: 065
  7. XANAX [Concomitant]
     Route: 065
  8. BACLOFEN [Concomitant]
     Route: 065
  9. ULTRAM [Concomitant]
     Route: 065
  10. RESTORIL [Concomitant]
     Route: 065
  11. OSTEO BI-FLEX [Concomitant]
     Route: 065
  12. COLACE [Concomitant]
     Route: 065
  13. TENUATE [Concomitant]
     Route: 065

REACTIONS (3)
  - APPLICATION SITE PRURITUS [None]
  - PRODUCT QUALITY ISSUE [None]
  - WRONG TECHNIQUE IN DRUG USAGE PROCESS [None]
